FAERS Safety Report 7321077-X (Version None)
Quarter: 2011Q1

REPORT INFORMATION
  Report Type: 
  Country: None (occurrence: None)
  Receive Date: 20110228
  Receipt Date: 20110218
  Transmission Date: 20110831
  Serious: Yes (Hospitalization)
  Sender: FDA-Public Use
  Company Number: NL-MEDIMMUNE-MEDI-0012332

PATIENT
  Sex: Male
  Weight: 8.5 kg

DRUGS (6)
  1. POTASSIUM [Concomitant]
     Dates: start: 20101227
  2. UNKNOWN ANTIBIOTICS NOS [Concomitant]
     Dates: start: 20101227
  3. UNKNOWN ANTICOAGULANTS NOS [Concomitant]
     Dates: start: 20101227
  4. SYNAGIS [Suspect]
     Route: 030
     Dates: start: 20101004, end: 20101129
  5. SYNAGIS [Suspect]
     Route: 030
     Dates: start: 20110125
  6. CALCIUM [Concomitant]
     Dates: start: 20101227

REACTIONS (2)
  - OXYGEN SATURATION ABNORMAL [None]
  - OXYGEN SATURATION DECREASED [None]
